FAERS Safety Report 15990919 (Version 2)
Quarter: 2019Q1

REPORT INFORMATION
  Report Type: Spontaneous
  Country: CH (occurrence: CH)
  Receive Date: 20190221
  Receipt Date: 20190228
  Transmission Date: 20190418
  Serious: Yes (Disabling, Other)
  Sender: FDA-Public Use
  Company Number: CH-GILEAD-2019-0391795

PATIENT
  Age: 77 Year
  Sex: Male

DRUGS (1)
  1. ZYDELIG [Suspect]
     Active Substance: IDELALISIB
     Indication: CHRONIC LYMPHOCYTIC LEUKAEMIA
     Dosage: 150 MG, BID
     Route: 048
     Dates: start: 20171215

REACTIONS (3)
  - Hepatic cyst [Unknown]
  - Lung cyst [Unknown]
  - Hepatic echinococciasis [Not Recovered/Not Resolved]

NARRATIVE: CASE EVENT DATE: 201811
